FAERS Safety Report 19632475 (Version 1)
Quarter: 2021Q3

REPORT INFORMATION
  Report Type: Other
  Country: US (occurrence: US)
  Receive Date: 20210728
  Receipt Date: 20210728
  Transmission Date: 20211014
  Serious: Yes (Hospitalization)
  Sender: FDA-Public Use
  Company Number: US-ROCHE-2662723

PATIENT
  Sex: Female

DRUGS (3)
  1. LACOSAMIDE. [Concomitant]
     Active Substance: LACOSAMIDE
     Indication: SEIZURE
  2. PHENYTOIN. [Suspect]
     Active Substance: PHENYTOIN
     Indication: SEIZURE
     Route: 065
  3. CAPECITABINE. [Suspect]
     Active Substance: CAPECITABINE
     Indication: TRIPLE NEGATIVE BREAST CANCER
     Route: 065

REACTIONS (5)
  - Confusional state [Recovering/Resolving]
  - Toxicity to various agents [Recovering/Resolving]
  - Dyskinesia [Recovering/Resolving]
  - Drug interaction [Unknown]
  - Memory impairment [Recovering/Resolving]
